FAERS Safety Report 23530061 (Version 1)
Quarter: 2024Q1

REPORT INFORMATION
  Report Type: Report from Study
  Country: US (occurrence: US)
  Receive Date: 20240216
  Receipt Date: 20240216
  Transmission Date: 20240410
  Serious: Yes (Hospitalization)
  Sender: FDA-Public Use
  Company Number: US-ABBVIE-5556832

PATIENT
  Sex: Female
  Weight: 85.28 kg

DRUGS (7)
  1. RINVOQ [Suspect]
     Active Substance: UPADACITINIB
     Indication: Psoriatic arthropathy
     Dosage: LAST ADMIN DATE 2023
     Route: 048
     Dates: start: 20230609
  2. RINVOQ [Suspect]
     Active Substance: UPADACITINIB
     Indication: Psoriatic arthropathy
     Dosage: FIRST ADMIN DATE 2023
     Route: 048
  3. METHOTREXATE SODIUM [Concomitant]
     Active Substance: METHOTREXATE SODIUM
     Indication: Psoriatic arthropathy
     Route: 048
  4. FOLIC ACID [Concomitant]
     Active Substance: FOLIC ACID
     Indication: Psoriatic arthropathy
     Route: 048
  5. HYDROXYCHLOROQUINE SULFATE [Concomitant]
     Active Substance: HYDROXYCHLOROQUINE SULFATE
     Indication: Psoriatic arthropathy
     Route: 048
  6. AMLODIPINE [Concomitant]
     Active Substance: AMLODIPINE BESYLATE
     Indication: Raynaud^s phenomenon
     Route: 048
  7. SILDENAFIL [Concomitant]
     Active Substance: SILDENAFIL
     Indication: Raynaud^s phenomenon
     Route: 048

REACTIONS (7)
  - Hand-foot-and-mouth disease [Unknown]
  - Nausea [Unknown]
  - Oropharyngeal pain [Unknown]
  - Illness [Unknown]
  - Vomiting [Unknown]
  - Weight decreased [Unknown]
  - Psoriatic arthropathy [Unknown]

NARRATIVE: CASE EVENT DATE: 20230101
